FAERS Safety Report 11300322 (Version 1)
Quarter: 2015Q3

REPORT INFORMATION
  Report Type: Spontaneous
  Country: US (occurrence: US)
  Receive Date: 20150722
  Receipt Date: 20150722
  Transmission Date: 20151125
  Serious: No
  Sender: FDA-Public Use
  Company Number: US-ELI_LILLY_AND_COMPANY-US201309004194

PATIENT
  Age: 68 Year
  Sex: Male

DRUGS (2)
  1. EFFIENT [Suspect]
     Active Substance: PRASUGREL HYDROCHLORIDE
     Indication: STENT PLACEMENT
     Dosage: 10 MG, QD
     Route: 048
     Dates: start: 201211
  2. EFFIENT [Suspect]
     Active Substance: PRASUGREL HYDROCHLORIDE
     Dosage: 5 MG, QD
     Route: 048

REACTIONS (4)
  - Chromaturia [Unknown]
  - Contusion [Not Recovered/Not Resolved]
  - Visual impairment [Not Recovered/Not Resolved]
  - Blood urine present [Unknown]

NARRATIVE: CASE EVENT DATE: 20130901
